FAERS Safety Report 8795021 (Version 2)
Quarter: 2015Q3

REPORT INFORMATION
  Report Type: Report from Study
  Country: US (occurrence: US)
  Receive Date: 20120917
  Receipt Date: 20150805
  Transmission Date: 20151125
  Serious: Yes (Death)
  Sender: FDA-Public Use
  Company Number: US-ROCHE-1128622

PATIENT
  Sex: Female

DRUGS (10)
  1. HEPARIN [Concomitant]
     Active Substance: HEPARIN SODIUM
     Dosage: 500 UNIT
     Route: 065
  2. ERBITUX [Suspect]
     Active Substance: CETUXIMAB
     Route: 042
  3. ERBITUX [Suspect]
     Active Substance: CETUXIMAB
     Indication: PRODUCT USED FOR UNKNOWN INDICATION
     Route: 042
     Dates: start: 200506, end: 200508
  4. ZANTAC [Concomitant]
     Active Substance: RANITIDINE HYDROCHLORIDE
     Route: 042
  5. AVASTIN [Suspect]
     Active Substance: BEVACIZUMAB
     Indication: HAEMATOLOGICAL MALIGNANCY
     Route: 042
  6. AVASTIN [Suspect]
     Active Substance: BEVACIZUMAB
     Indication: COLON CANCER
  7. ERBITUX [Suspect]
     Active Substance: CETUXIMAB
     Route: 042
  8. ZYRTEC [Concomitant]
     Active Substance: CETIRIZINE HYDROCHLORIDE
     Route: 048
  9. AVASTIN [Suspect]
     Active Substance: BEVACIZUMAB
     Indication: COLON CANCER
     Route: 042
     Dates: start: 20050706, end: 200508
  10. ALLEGRA [Concomitant]
     Active Substance: FEXOFENADINE HYDROCHLORIDE
     Route: 048

REACTIONS (19)
  - Muscle spasms [Unknown]
  - Feeling hot [Unknown]
  - Dermatitis acneiform [Unknown]
  - Protein urine [Unknown]
  - Death [Fatal]
  - Haemoptysis [Unknown]
  - Dry skin [Unknown]
  - Nausea [Unknown]
  - Anaemia [Unknown]
  - Choluria [Unknown]
  - Headache [Unknown]
  - Odynophagia [Unknown]
  - Abdominal pain lower [Recovering/Resolving]
  - Asthenia [Unknown]
  - Decreased appetite [Unknown]
  - Musculoskeletal chest pain [Unknown]
  - Oropharyngeal pain [Unknown]
  - Vomiting [Unknown]
  - Dizziness [Recovered/Resolved]
